FAERS Safety Report 7328550-9 (Version None)
Quarter: 2011Q1

REPORT INFORMATION
  Report Type: 
  Country: None (occurrence: None)
  Receive Date: 20110303
  Receipt Date: 20110225
  Transmission Date: 20110831
  Serious: Yes (Hospitalization, Other)
  Sender: FDA-Public Use
  Company Number: CR-ABBOTT-11P-039-0707825-00

PATIENT
  Age: 63 Year
  Sex: Female

DRUGS (1)
  1. HUMIRA [Suspect]
     Indication: RHEUMATOID ARTHRITIS
     Route: 058
     Dates: end: 20101001

REACTIONS (5)
  - FEBRILE NEUTROPENIA [None]
  - HAEMORRHAGE [None]
  - CONTUSION [None]
  - APLASTIC ANAEMIA [None]
  - SEPTIC SHOCK [None]
